FAERS Safety Report 5904971-3 (Version None)
Quarter: 2008Q4

REPORT INFORMATION
  Report Type: 
  Country: None (occurrence: None)
  Receive Date: 20081001
  Receipt Date: 20080919
  Transmission Date: 20090506
  Serious: Yes (Other)
  Sender: FDA-Public Use
  Company Number: AU-SANOFI-SYNTHELABO-A01200808172

PATIENT
  Age: 36 Year
  Sex: Male

DRUGS (3)
  1. STILNOX [Suspect]
     Indication: DRUG USE FOR UNKNOWN INDICATION
     Route: 048
  2. PHENERGAN HCL [Concomitant]
     Indication: ANTIALLERGIC THERAPY
     Route: 048
  3. ALCOHOL [Concomitant]
     Indication: ALCOHOL USE
     Dosage: 1 BOTTLE OF RED WINE UNK
     Route: 048

REACTIONS (5)
  - AMNESIA [None]
  - BLOOD ALCOHOL INCREASED [None]
  - ROAD TRAFFIC ACCIDENT [None]
  - SLEEP-RELATED EATING DISORDER [None]
  - SOMNAMBULISM [None]
